FAERS Safety Report 4386780-2 (Version None)
Quarter: 2004Q2

REPORT INFORMATION
  Report Type: 
  Country: None (occurrence: None)
  Receive Date: 20040607
  Receipt Date: 20030514
  Transmission Date: 20050107
  Serious: No
  Sender: FDA-Public Use
  Company Number: 338017

PATIENT
  Age: 16 Year
  Sex: Female

DRUGS (1)
  1. ACCUTANE [Suspect]
     Indication: ACNE
     Dosage: 40 MG DAILY ORAL
     Route: 048
     Dates: start: 20020725, end: 20020830

REACTIONS (3)
  - ADVERSE EVENT [None]
  - HEPATITIS [None]
  - LIVER FUNCTION TEST ABNORMAL [None]
